FAERS Safety Report 11037350 (Version 1)
Quarter: 2015Q2

REPORT INFORMATION
  Report Type: Spontaneous
  Country: US (occurrence: US)
  Receive Date: 20150416
  Receipt Date: 20150416
  Transmission Date: 20150821
  Serious: No
  Sender: FDA-Public Use
  Company Number: US-PFIZER INC-2015123826

PATIENT
  Age: 56 Year
  Sex: Male
  Weight: 91 kg

DRUGS (1)
  1. ADVIL [Suspect]
     Active Substance: IBUPROFEN
     Indication: BACK PAIN
     Dosage: 400 MG, EVERY 6 HRS AS NEEDED

REACTIONS (2)
  - Drug ineffective [Unknown]
  - Product quality issue [Unknown]
